FAERS Safety Report 25177265 (Version 1)
Quarter: 2025Q2

REPORT INFORMATION
  Report Type: Spontaneous
  Country: DE (occurrence: DE)
  Receive Date: 20250409
  Receipt Date: 20250409
  Transmission Date: 20250717
  Serious: Yes (Other)
  Sender: ACCORD
  Company Number: DE-Accord-476593

PATIENT
  Age: 84 Year
  Sex: Male

DRUGS (4)
  1. MITOMYCIN [Suspect]
     Active Substance: MITOMYCIN
     Indication: Transitional cell carcinoma
     Dates: end: 202503
  2. RAMIPRIL [Concomitant]
     Active Substance: RAMIPRIL
  3. CHOLECALCIFEROL [Concomitant]
     Active Substance: CHOLECALCIFEROL
  4. SITAGLIPTIN [Concomitant]
     Active Substance: SITAGLIPTIN

REACTIONS (2)
  - Myelosuppression [Unknown]
  - Haemolytic anaemia [Unknown]

NARRATIVE: CASE EVENT DATE: 20250101
